FAERS Safety Report 6902376-X (Version None)
Quarter: 2010Q3

REPORT INFORMATION
  Report Type: 
  Country: None (occurrence: None)
  Receive Date: 20100803
  Receipt Date: 20080521
  Transmission Date: 20110219
  Serious: No
  Sender: FDA-Public Use
  Company Number: US-PFIZER INC-2008031883

PATIENT
  Age: 66 Year
  Sex: Female
  Weight: 79.4 kg

DRUGS (2)
  1. LYRICA [Suspect]
     Indication: DIABETIC NEUROPATHY
     Route: 048
     Dates: start: 20080228
  2. WARFARIN SODIUM [Concomitant]
     Indication: ATRIAL FIBRILLATION

REACTIONS (1)
  - INTERNATIONAL NORMALISED RATIO INCREASED [None]
